FAERS Safety Report 15087677 (Version 2)
Quarter: 2018Q3

REPORT INFORMATION
  Report Type: Spontaneous
  Country: DE (occurrence: DE)
  Receive Date: 20180629
  Receipt Date: 20180712
  Transmission Date: 20181010
  Serious: Yes (Hospitalization)
  Sender: FDA-Public Use
  Company Number: DE-TEVA-2018-DE-914801

PATIENT
  Age: 79 Year
  Sex: Female
  Weight: 44.5 kg

DRUGS (12)
  1. DIGACIN 0,25 [Concomitant]
     Active Substance: DIGOXIN
     Dosage: EVERY 2ND DAY
     Route: 048
  2. BISOPROLOL [Concomitant]
     Active Substance: BISOPROLOL
     Dosage: 10 MILLIGRAM DAILY;
     Route: 048
  3. VERAPAMIL [Suspect]
     Active Substance: VERAPAMIL HYDROCHLORIDE
     Indication: ATRIAL FIBRILLATION
     Dosage: 240 MILLIGRAM DAILY;
     Route: 048
     Dates: start: 201802
  4. NOVAMINSULFON [Concomitant]
     Active Substance: METAMIZOLE
     Route: 048
  5. ENTRESTO 49MG/51MG [Concomitant]
     Dosage: 1?0?1.5
     Route: 065
  6. ISOPTIN [Concomitant]
     Active Substance: VERAPAMIL HYDROCHLORIDE
     Dosage: 240 MILLIGRAM DAILY;
     Route: 048
  7. MARCUMAR [Concomitant]
     Active Substance: PHENPROCOUMON
     Route: 048
  8. VIGANTOLETTEN 1000 [Concomitant]
     Dosage: 1 DOSAGE FORMS DAILY;
     Route: 048
  9. CALCIUM BRAUSETABLETTEN [Concomitant]
     Dosage: 1 DOSAGE FORMS DAILY;
     Route: 048
  10. TORASEMID [Concomitant]
     Active Substance: TORSEMIDE
     Dosage: 1 DOSAGE FORMS DAILY;
     Route: 048
  11. MAGNESIUM VERLA N DRAGEES [Concomitant]
     Dosage: 1 DOSAGE FORMS DAILY;
     Route: 065
  12. SIMVASTATIN AAA PHARMA [Interacting]
     Active Substance: SIMVASTATIN
     Indication: CEREBROVASCULAR ACCIDENT
     Dosage: 1 DOSAGE FORMS DAILY;
     Route: 048
     Dates: start: 201711

REACTIONS (3)
  - Rhabdomyolysis [Recovering/Resolving]
  - Drug interaction [Recovering/Resolving]
  - Drug prescribing error [Recovering/Resolving]

NARRATIVE: CASE EVENT DATE: 20180330
